FAERS Safety Report 9800808 (Version 5)
Quarter: 2014Q1

REPORT INFORMATION
  Report Type: Spontaneous
  Country: JP (occurrence: JP)
  Receive Date: 20140107
  Receipt Date: 20140319
  Transmission Date: 20141002
  Serious: Yes (Death, Life-Threatening, Other)
  Sender: FDA-Public Use
  Company Number: JP-ROCHE-1326556

PATIENT
  Age: 56 Year
  Sex: Female
  Weight: 40 kg

DRUGS (10)
  1. PERJETA [Suspect]
     Indication: BREAST CANCER
     Dosage: STRENGTH: 420 MG/14 ML,
     Route: 041
     Dates: start: 20131025, end: 20131025
  2. PERJETA [Suspect]
     Indication: BREAST CANCER
     Route: 041
     Dates: start: 20131115, end: 20131115
  3. PERJETA [Suspect]
     Indication: BREAST CANCER
     Route: 041
     Dates: start: 20131206, end: 20131206
  4. HERCEPTIN [Suspect]
     Indication: BREAST CANCER
     Dosage: LOADING DOSE
     Route: 041
     Dates: start: 20131026, end: 20131026
  5. HERCEPTIN [Suspect]
     Indication: BREAST CANCER
     Dosage: MAINTENANCE DOSE
     Route: 041
     Dates: start: 20131115, end: 20131115
  6. HERCEPTIN [Suspect]
     Indication: BREAST CANCER
     Route: 041
     Dates: start: 20131206, end: 20131206
  7. DOCETAXEL [Suspect]
     Indication: BREAST CANCER
     Dosage: DOSAGE IS UNCERTAIN.
     Route: 041
     Dates: start: 20131026, end: 20131206
  8. GASTER D [Concomitant]
     Route: 048
  9. LYRICA [Concomitant]
     Indication: CANCER PAIN
     Route: 048
     Dates: start: 20131108
  10. CALONAL [Concomitant]
     Indication: CANCER PAIN
     Dosage: 3-4 TIMES/DAY
     Route: 048

REACTIONS (2)
  - Interstitial lung disease [Fatal]
  - Febrile neutropenia [Recovered/Resolved]
